FAERS Safety Report 8542983-4 (Version None)
Quarter: 2012Q3

REPORT INFORMATION
  Report Type: 
  Country: None (occurrence: None)
  Receive Date: 20120727
  Receipt Date: 20120720
  Transmission Date: 20120928
  Serious: Yes (Other)
  Sender: FDA-Public Use
  Company Number: AU-BAYER-2011-083408

PATIENT
  Age: 35 Year
  Sex: Female

DRUGS (1)
  1. MIRENA [Suspect]
     Dosage: UNK
     Dates: start: 20110812

REACTIONS (4)
  - HEART RATE IRREGULAR [None]
  - FATIGUE [None]
  - DYSPNOEA EXERTIONAL [None]
  - PALPITATIONS [None]
